FAERS Safety Report 17662883 (Version 1)
Quarter: 2020Q2

REPORT INFORMATION
  Report Type: Spontaneous
  Country: US (occurrence: US)
  Receive Date: 20200413
  Receipt Date: 20200413
  Transmission Date: 20200713
  Serious: No
  Sender: FDA-Public Use
  Company Number: US-JNJFOC-20200322064

PATIENT
  Age: 64 Year
  Sex: Female

DRUGS (13)
  1. PREGABALIN. [Concomitant]
     Active Substance: PREGABALIN
  2. VIT D [Concomitant]
     Active Substance: VITAMIN D NOS
  3. NITRIC OXIDE. [Concomitant]
     Active Substance: NITRIC OXIDE
  4. TYLENOL [Suspect]
     Active Substance: ACETAMINOPHEN
     Indication: PAIN
     Route: 065
  5. IRON [Concomitant]
     Active Substance: IRON
  6. VITAMIN B12 [Concomitant]
     Active Substance: CYANOCOBALAMIN
  7. IMODIUM [Suspect]
     Active Substance: LOPERAMIDE HYDROCHLORIDE
     Indication: DIARRHOEA
     Route: 065
  8. SYNTHROID [Concomitant]
     Active Substance: LEVOTHYROXINE SODIUM
  9. CIPRALEX [Concomitant]
     Active Substance: ESCITALOPRAM OXALATE
  10. MORPHINE [Concomitant]
     Active Substance: MORPHINE
  11. OPSUMIT [Concomitant]
     Active Substance: MACITENTAN
  12. SENOKOT [Concomitant]
     Active Substance: SENNOSIDES
  13. O2                                 /00150301/ [Concomitant]
     Active Substance: OXYGEN

REACTIONS (3)
  - Abdominal discomfort [Unknown]
  - Pain [Unknown]
  - Diarrhoea [Unknown]
